FAERS Safety Report 7659360-0 (Version None)
Quarter: 2011Q3

REPORT INFORMATION
  Report Type: 
  Country: None (occurrence: None)
  Receive Date: 20110805
  Receipt Date: 20110729
  Transmission Date: 20111222
  Serious: Yes (Other)
  Sender: FDA-Public Use
  Company Number: US-PFIZER INC-US-WYE-H15899110

PATIENT
  Sex: Female
  Weight: 56.7 kg

DRUGS (12)
  1. CALCIUM [Concomitant]
  2. MULTIVITAMINS, COMBINATIONS [Concomitant]
  3. SERTRALINE [Concomitant]
  4. PREMARIN [Suspect]
     Dosage: USED OFF AND ON FOR YEARS
     Route: 065
  5. ATENOLOL [Concomitant]
  6. DESONIDE [Concomitant]
     Route: 065
  7. PREMARIN [Suspect]
     Indication: VULVOVAGINAL DRYNESS
     Dosage: 1 G, 1XWEEKLY
     Route: 067
  8. PREMARIN [Suspect]
     Dosage: 1 G, 1XWEEKLY
  9. LISINOPRIL [Concomitant]
  10. PREMARIN [Suspect]
     Indication: ATROPHIC VULVOVAGINITIS
     Dosage: 1 G, 1X/DAY
     Route: 067
  11. GLUCOSAMINE [Concomitant]
  12. NAPROSYN [Concomitant]
     Route: 065

REACTIONS (4)
  - INAPPROPRIATE SCHEDULE OF DRUG ADMINISTRATION [None]
  - DYSPAREUNIA [None]
  - LYME DISEASE [None]
  - VAGINAL HAEMORRHAGE [None]
